FAERS Safety Report 5483066-X (Version None)
Quarter: 2007Q4

REPORT INFORMATION
  Report Type: 
  Country: None (occurrence: None)
  Receive Date: 20071005
  Receipt Date: 20070305
  Transmission Date: 20080405
  Serious: Yes (Hospitalization)
  Sender: FDA-Public Use
  Company Number: 6030771

PATIENT
  Age: 44 Year
  Sex: Male

DRUGS (3)
  1. CISPLATIN [Suspect]
     Indication: TESTICULAR SEMINOMA (PURE)
     Dosage: 20 MG/M2 (20 MG/M2, 1 IN 1 D)
  2. BLEOMYCIN [Suspect]
     Indication: TESTICULAR SEMINOMA (PURE)
     Dosage: 15 MG (15 MG, 1 IN 1 D)
  3. ETOPOSIDE [Suspect]
     Indication: TESTICULAR SEMINOMA (PURE)
     Dosage: 100 MG/M2 (100 MG/M2, 1 IN 1 D)

REACTIONS (1)
  - ISCHAEMIC STROKE [None]
